FAERS Safety Report 6311211-2 (Version None)
Quarter: 2009Q3

REPORT INFORMATION
  Report Type: 
  Country: None (occurrence: None)
  Receive Date: 20090817
  Receipt Date: 20090519
  Transmission Date: 20100115
  Serious: No
  Sender: FDA-Public Use
  Company Number: US-BAYER-200913216NA

PATIENT
  Age: 39 Year
  Sex: Female
  Weight: 64 kg

DRUGS (10)
  1. MIRENA [Suspect]
     Indication: CONTRACEPTION
     Dosage: CONTINUOUS
     Route: 015
     Dates: start: 20080901, end: 20090301
  2. COLESTIPOL HYDROCHLORIDE [Concomitant]
  3. PENTASA [Concomitant]
     Dosage: TOTAL DAILY DOSE: 750 MG
  4. LIBRA [Concomitant]
  5. ACIPHEX [Concomitant]
  6. NAMENDA [Concomitant]
     Dosage: TOTAL DAILY DOSE: 10 MG
  7. LAMICTAL [Concomitant]
     Dosage: TOTAL DAILY DOSE: 100 MG
  8. VALTREX [Concomitant]
  9. CLARITIN-D [Concomitant]
  10. NASONEX [Concomitant]

REACTIONS (11)
  - AMENORRHOEA [None]
  - ARTHRALGIA [None]
  - ASTHENIA [None]
  - FATIGUE [None]
  - JOINT SWELLING [None]
  - METRORRHAGIA [None]
  - MUSCULOSKELETAL STIFFNESS [None]
  - MYALGIA [None]
  - OEDEMA PERIPHERAL [None]
  - PAIN IN EXTREMITY [None]
  - VAGINAL DISCHARGE [None]
